FAERS Safety Report 4767332-9 (Version None)
Quarter: 2005Q3

REPORT INFORMATION
  Report Type: 
  Country: None (occurrence: None)
  Receive Date: 20050909
  Receipt Date: 20050830
  Transmission Date: 20060218
  Serious: Yes (Death, Hospitalization)
  Sender: FDA-Public Use
  Company Number: 163-20785-05050322

PATIENT
  Age: 82 Year
  Sex: Female

DRUGS (1)
  1. THALOMID [Suspect]
     Indication: MULTIPLE MYELOMA
     Dosage: 100 MG DAILY, ORAL
     Route: 048
     Dates: start: 20050413

REACTIONS (5)
  - COAGULOPATHY [None]
  - HAEMORRHAGE [None]
  - OEDEMA PERIPHERAL [None]
  - POST PROCEDURAL COMPLICATION [None]
  - SKIN DISCOLOURATION [None]
